FAERS Safety Report 4519689-1 (Version None)
Quarter: 2004Q4

REPORT INFORMATION
  Report Type: 
  Country: None (occurrence: None)
  Receive Date: 20041206
  Receipt Date: 20041124
  Transmission Date: 20050328
  Serious: Yes (Hospitalization)
  Sender: FDA-Public Use
  Company Number: PHBS2004IE15846

PATIENT
  Sex: Male

DRUGS (2)
  1. LITHIUM [Concomitant]
  2. CO-DIOVAN [Suspect]
     Route: 048

REACTIONS (1)
  - DRUG LEVEL INCREASED [None]
